FAERS Safety Report 21911250 (Version 1)
Quarter: 2023Q1

REPORT INFORMATION
  Report Type: Spontaneous
  Country: US (occurrence: None)
  Receive Date: 20230125
  Receipt Date: 20230125
  Transmission Date: 20230417
  Serious: Yes (Other)
  Sender: FDA-Public Use
  Company Number: None

PATIENT
  Age: 69 Year
  Sex: Female
  Weight: 75.6 kg

DRUGS (15)
  1. DEXILANT [Suspect]
     Active Substance: DEXLANSOPRAZOLE
     Indication: Gastrooesophageal reflux disease
     Dosage: OTHER QUANTITY : 1 CAPSULE(S);?
     Route: 048
     Dates: start: 20190101, end: 20221206
  2. BUPRONION XL [Concomitant]
  3. CHOLECALCIFEROL D3 [Concomitant]
  4. REPATHA [Concomitant]
     Active Substance: EVOLOCUMAB
  5. FLECAINIDE [Concomitant]
     Active Substance: FLECAINIDE
  6. HYDROCHLOROTHIAZIDE [Concomitant]
     Active Substance: HYDROCHLOROTHIAZIDE
  7. IVIG INFUSION-PRIVIGEN [Concomitant]
  8. METFORMIN [Concomitant]
     Active Substance: METFORMIN HYDROCHLORIDE
  9. MONTELUKAST [Concomitant]
     Active Substance: MONTELUKAST SODIUM
  10. PANTOPRAZOLE [Concomitant]
     Active Substance: PANTOPRAZOLE
  11. PEPCID [Concomitant]
     Active Substance: FAMOTIDINE
  12. PLAVIX [Concomitant]
     Active Substance: CLOPIDOGREL BISULFATE
  13. VERAPAMIL XL [Concomitant]
  14. MULTIVITAMIN GUMMIES [Concomitant]
  15. CALCIUM/VIT D GUMMES [Concomitant]

REACTIONS (2)
  - Cutaneous lupus erythematosus [None]
  - Therapy cessation [None]

NARRATIVE: CASE EVENT DATE: 20221101
